FAERS Safety Report 9036490 (Version 1)
Quarter: 2013Q1

REPORT INFORMATION
  Report Type: Report from Study
  Country: US (occurrence: US)
  Receive Date: 20130129
  Receipt Date: 20130129
  Transmission Date: 20140127
  Serious: No
  Sender: FDA-Public Use
  Company Number: US-ABBOTT-12P-163-0899026-00

PATIENT
  Age: 74 Year
  Sex: Male

DRUGS (8)
  1. HUMIRA 40 MG/0.8 ML PEN [Suspect]
     Indication: PSORIASIS
     Dates: start: 201110
  2. GLYBURIDE [Concomitant]
     Indication: DIABETES MELLITUS
     Dosage: 5MG IN AM AND 2.5 MG IN PM
  3. METFORMIN [Concomitant]
     Indication: DIABETES MELLITUS
     Dosage: DAILY
  4. AVAPRO [Concomitant]
     Indication: PRODUCT USED FOR UNKNOWN INDICATION
     Dosage: DAILY
  5. PRAZOSIN [Concomitant]
     Indication: PRODUCT USED FOR UNKNOWN INDICATION
     Dosage: DAILY
  6. HYDROCHLOROT [Concomitant]
     Indication: BLOOD PRESSURE
     Dosage: DAILY AM
  7. PAXIL [Concomitant]
     Indication: ANXIETY
     Dosage: DAILY
  8. ACTOS [Concomitant]
     Indication: DIABETES MELLITUS
     Dosage: DAILY

REACTIONS (4)
  - Chills [Recovering/Resolving]
  - Dysuria [Recovering/Resolving]
  - Headache [Recovering/Resolving]
  - Kidney infection [Recovering/Resolving]
